FAERS Safety Report 15477722 (Version 1)
Quarter: 2018Q4

REPORT INFORMATION
  Report Type: Spontaneous
  Country: US (occurrence: US)
  Receive Date: 20181002
  Receipt Date: 20181002
  Transmission Date: 20190205
  Serious: Yes (Hospitalization)
  Sender: FDA-Public Use
  Company Number: None

PATIENT
  Age: 72 Year
  Sex: Female
  Weight: 60.2 kg

DRUGS (9)
  1. METOPROLOL. [Concomitant]
     Active Substance: METOPROLOL
     Dates: start: 20180819, end: 20181002
  2. METFORMIN [Concomitant]
     Active Substance: METFORMIN HYDROCHLORIDE
     Dates: start: 20180819, end: 20181002
  3. DIGOXIN. [Suspect]
     Active Substance: DIGOXIN
     Indication: ATRIAL FIBRILLATION
     Dosage: ?          OTHER FREQUENCY:SU, T, TH, SA;?
     Route: 048
     Dates: start: 20180824, end: 20181002
  4. PRADAXA [Concomitant]
     Active Substance: DABIGATRAN ETEXILATE MESYLATE
     Dates: start: 20180819, end: 20181002
  5. HYDROCHLOROTHIAZIDE. [Concomitant]
     Active Substance: HYDROCHLOROTHIAZIDE
     Dates: start: 20180819, end: 20181002
  6. ASPIRIN. [Concomitant]
     Active Substance: ASPIRIN
     Dates: start: 20180819, end: 20181002
  7. ATORVASTATIN [Concomitant]
     Active Substance: ATORVASTATIN
     Dates: start: 20180819, end: 20181002
  8. DILTIAZEM. [Concomitant]
     Active Substance: DILTIAZEM
     Dates: start: 20180819, end: 20181002
  9. LISINOPRIL. [Concomitant]
     Active Substance: LISINOPRIL
     Dates: start: 20180819, end: 20181002

REACTIONS (4)
  - Heart rate decreased [None]
  - Pallor [None]
  - Blood pressure decreased [None]
  - Hyperhidrosis [None]

NARRATIVE: CASE EVENT DATE: 20181002
